FAERS Safety Report 9454686 (Version 1)
Quarter: 2013Q3

REPORT INFORMATION
  Report Type: Spontaneous
  Country: IT (occurrence: FR)
  Receive Date: 20130812
  Receipt Date: 20130812
  Transmission Date: 20140515
  Serious: Yes (Other)
  Sender: FDA-Public Use
  Company Number: FR-FRI-1000047604

PATIENT
  Age: 74 Year
  Sex: Female

DRUGS (9)
  1. NEBIVOLOL [Suspect]
     Dosage: 5 MG
     Route: 048
     Dates: start: 2011
  2. BIOFLAVONOIDS [Suspect]
     Dosage: 1000 MG
     Route: 048
     Dates: start: 20130618, end: 20130622
  3. NOCTAMIDE [Suspect]
     Indication: INSOMNIA
     Dosage: 2 MG
     Route: 048
     Dates: start: 2011, end: 20130614
  4. PARACETAMOL [Suspect]
     Indication: PAIN
     Dosage: 4000 MG
     Route: 048
     Dates: start: 2011
  5. SIMVASTATINE [Suspect]
     Dosage: 20 MG
     Dates: start: 2011
  6. PREVISCAN [Suspect]
     Dosage: 20 MG
     Route: 048
     Dates: start: 2007
  7. HYPERIUM [Suspect]
     Dosage: 1 MG
     Route: 048
     Dates: start: 2011
  8. IRBESARTAN [Suspect]
     Dosage: 300 MG/12.5 MG
     Dates: start: 20121016
  9. DICLOFENAC [Suspect]
     Dates: end: 201303

REACTIONS (1)
  - Haematoma [Recovered/Resolved]
